FAERS Safety Report 9031306 (Version 3)
Quarter: 2013Q1

REPORT INFORMATION
  Report Type: Spontaneous
  Country: JP (occurrence: JP)
  Receive Date: 20130124
  Receipt Date: 20130305
  Transmission Date: 20140127
  Serious: Yes (Life-Threatening, Hospitalization)
  Sender: FDA-Public Use
  Company Number: JP-PFIZER INC-2013028474

PATIENT
  Age: 60 Year
  Sex: Male
  Weight: 60 kg

DRUGS (10)
  1. LYRICA [Suspect]
     Indication: CONSTIPATION
     Dosage: 2.5 MG, 2X/DAY
     Route: 048
     Dates: start: 20121016, end: 20121221
  2. LYRICA [Suspect]
     Indication: PROCTALGIA
  3. DANTRIUM [Suspect]
     Indication: SPINAL LIGAMENT OSSIFICATION
     Dosage: 2.5 MG, 1X/DAY
     Route: 048
     Dates: start: 20120903, end: 20121221
  4. MYSLEE [Suspect]
     Indication: INSOMNIA
     Dosage: 5 MG, 1X/DAY
     Route: 048
     Dates: start: 20120816, end: 20121206
  5. SHAKUYAKU-KANZO-TO [Suspect]
     Indication: SPINAL LIGAMENT OSSIFICATION
     Dosage: 2.5 G, 1X/DAY
     Route: 048
     Dates: start: 20121112, end: 20121221
  6. JUNCHO-TO [Suspect]
     Indication: CONSTIPATION
     Dosage: 2.5 G, 3X/DAY
     Route: 048
     Dates: start: 20121016, end: 20121221
  7. JUNCHO-TO [Suspect]
     Indication: PROCTALGIA
  8. LENDORMIN [Suspect]
     Indication: INSOMNIA
     Dosage: 0.125 MG, 1X/DAY
     Route: 048
     Dates: start: 20121207, end: 20121209
  9. MEILAX [Suspect]
     Indication: INSOMNIA
     Dosage: 1 MG, 1X/DAY
     Route: 048
     Dates: start: 20121213, end: 20121221
  10. RIVOTRIL [Suspect]
     Indication: INSOMNIA
     Dosage: 0.5 MG, 1X/DAY
     Route: 048
     Dates: start: 20121217, end: 20121219

REACTIONS (2)
  - Interstitial lung disease [Recovering/Resolving]
  - Respiratory failure [Unknown]
